FAERS Safety Report 21177652 (Version 7)
Quarter: 2022Q4

REPORT INFORMATION
  Report Type: Report from Study
  Country: JP (occurrence: JP)
  Receive Date: 20220805
  Receipt Date: 20221201
  Transmission Date: 20230113
  Serious: Yes (Hospitalization)
  Sender: FDA-Public Use
  Company Number: JP-ONO-2022JP021414

PATIENT
  Age: 60 Year
  Sex: Male
  Weight: 51 kg

DRUGS (24)
  1. ETELCALCETIDE [Suspect]
     Active Substance: ETELCALCETIDE
     Indication: Hyperparathyroidism secondary
     Dosage: 2.5 MILLIGRAM, Q84H
     Route: 010
     Dates: start: 20210213, end: 20210907
  2. ETELCALCETIDE [Suspect]
     Active Substance: ETELCALCETIDE
     Dosage: 2.5 MILLIGRAM, Q84H
     Route: 010
     Dates: start: 20211214, end: 20220212
  3. ETELCALCETIDE [Suspect]
     Active Substance: ETELCALCETIDE
     Dosage: 2.5 MILLIGRAM, Q56H
     Route: 010
     Dates: start: 20220215, end: 20220611
  4. ETELCALCETIDE [Suspect]
     Active Substance: ETELCALCETIDE
     Dosage: 2.5 MILLIGRAM, Q84H
     Route: 010
     Dates: start: 20220614
  5. MAXACALCITOL [Concomitant]
     Active Substance: MAXACALCITOL
     Dosage: 5 MICROGRAM, Q84H
     Route: 010
     Dates: start: 20190910, end: 20191207
  6. MAXACALCITOL [Concomitant]
     Active Substance: MAXACALCITOL
     Dosage: 5 MICROGRAM, Q56H
     Dates: start: 20191210, end: 20200125
  7. MAXACALCITOL [Concomitant]
     Active Substance: MAXACALCITOL
     Dosage: 5 MICROGRAM, Q84H
     Dates: start: 20200128, end: 20200912
  8. MAXACALCITOL [Concomitant]
     Active Substance: MAXACALCITOL
     Dosage: 5 MICROGRAM, Q56H
     Dates: start: 20200915, end: 20201117
  9. MAXACALCITOL [Concomitant]
     Active Substance: MAXACALCITOL
     Dosage: 2.5 MICROGRAM, Q56H
     Dates: start: 20201119, end: 20210112
  10. MAXACALCITOL [Concomitant]
     Active Substance: MAXACALCITOL
     Dosage: 5 MICROGRAM, Q84H
     Dates: start: 20210116, end: 20210713
  11. MAXACALCITOL [Concomitant]
     Active Substance: MAXACALCITOL
     Dosage: 2.5 MICROGRAM, Q84H
     Dates: start: 20210717, end: 20210914
  12. MAXACALCITOL [Concomitant]
     Active Substance: MAXACALCITOL
     Dosage: 2.5 MICROGRAM, Q84H
     Dates: start: 20220118, end: 20220212
  13. MAXACALCITOL [Concomitant]
     Active Substance: MAXACALCITOL
     Dosage: 2.5 MICROGRAM, Q56H
     Dates: start: 20220215, end: 20220312
  14. MAXACALCITOL [Concomitant]
     Active Substance: MAXACALCITOL
     Dosage: 5 MICROGRAM, Q84H
     Dates: start: 20220315, end: 20220514
  15. MAXACALCITOL [Concomitant]
     Active Substance: MAXACALCITOL
     Dosage: 5 MICROGRAM, Q56H
     Dates: start: 20220517, end: 20220913
  16. MAXACALCITOL [Concomitant]
     Active Substance: MAXACALCITOL
     Dosage: 5 MICROGRAM, Q84H
     Dates: start: 20220917
  17. LANTHANUM CARBONATE [Concomitant]
     Active Substance: LANTHANUM CARBONATE
     Dosage: 500 MILLIGRAM, QD
     Route: 048
     Dates: end: 20201021
  18. LANTHANUM CARBONATE [Concomitant]
     Active Substance: LANTHANUM CARBONATE
     Dosage: 1000 MILLIGRAM, QD
     Dates: start: 20201022, end: 20220511
  19. LANTHANUM CARBONATE [Concomitant]
     Active Substance: LANTHANUM CARBONATE
     Dosage: 500 MILLIGRAM, QD
     Dates: start: 20220512
  20. Fesin [Concomitant]
     Dosage: 40 MILLIGRAM, QWK
     Route: 042
     Dates: start: 20190921, end: 20191109
  21. Fesin [Concomitant]
     Dosage: 80 MILLIGRAM, Q4WK
     Dates: start: 20191123, end: 20200912
  22. Fesin [Concomitant]
     Dosage: 40 MILLIGRAM, QWK
     Dates: start: 20210204, end: 20210501
  23. SODIUM FERROUS CITRATE [Concomitant]
     Active Substance: SODIUM FERROUS CITRATE
     Dosage: 50 MILLIGRAM, QD
     Route: 048
     Dates: start: 20210924, end: 20211023
  24. SODIUM FERROUS CITRATE [Concomitant]
     Active Substance: SODIUM FERROUS CITRATE
     Dosage: 150 MILLIGRAM, QWK
     Dates: start: 20211026

REACTIONS (4)
  - Shunt stenosis [Recovered/Resolved]
  - Shunt stenosis [Recovering/Resolving]
  - Shunt stenosis [Recovering/Resolving]
  - Shunt stenosis [Recovering/Resolving]

NARRATIVE: CASE EVENT DATE: 20211021
